FAERS Safety Report 5446865-6 (Version None)
Quarter: 2007Q3

REPORT INFORMATION
  Report Type: 
  Country: None (occurrence: None)
  Receive Date: 20070907
  Receipt Date: 20070905
  Transmission Date: 20080115
  Serious: Yes (Hospitalization)
  Sender: FDA-Public Use
  Company Number: IT-ABBOTT-07P-083-0372932-00

PATIENT
  Sex: Male

DRUGS (3)
  1. KLACID [Suspect]
     Indication: PHARYNGOLARYNGEAL PAIN
     Dates: start: 20070529, end: 20070602
  2. KLACID [Suspect]
  3. PARACETAMOL [Suspect]
     Indication: PHARYNGOLARYNGEAL PAIN
     Dates: start: 20070529, end: 20070602

REACTIONS (3)
  - EYELID OEDEMA [None]
  - RASH ERYTHEMATOUS [None]
  - URTICARIA [None]
